FAERS Safety Report 16657175 (Version 3)
Quarter: 2019Q4

REPORT INFORMATION
  Report Type: Spontaneous
  Country: JP (occurrence: JP)
  Receive Date: 20190801
  Receipt Date: 20191203
  Transmission Date: 20200122
  Serious: Yes (Hospitalization)
  Sender: FDA-Public Use
  Company Number: PHHY2019JP176967

PATIENT
  Sex: Male
  Weight: 2.03 kg

DRUGS (3)
  1. AFINITOR [Suspect]
     Active Substance: EVEROLIMUS
     Dosage: 0.025 MG, QD
     Route: 065
  2. AFINITOR [Suspect]
     Active Substance: EVEROLIMUS
     Indication: TUBEROUS SCLEROSIS COMPLEX
     Dosage: 0.4 MG, QD (2.8 MG/M2/D, 0.2 MG/KG/D)
     Route: 048
  3. AFINITOR [Suspect]
     Active Substance: EVEROLIMUS
     Dosage: 0.1 MG, QD
     Route: 065

REACTIONS (7)
  - Product use issue [Unknown]
  - Respiratory disorder [Recovering/Resolving]
  - Liver disorder [Recovering/Resolving]
  - Coagulopathy [Recovering/Resolving]
  - Pulmonary haemorrhage [Recovering/Resolving]
  - Acne [Recovering/Resolving]
  - Product use in unapproved indication [Unknown]
